FAERS Safety Report 4270461-X (Version None)
Quarter: 2004Q1

REPORT INFORMATION
  Report Type: 
  Country: None (occurrence: None)
  Receive Date: 20040114
  Receipt Date: 20040102
  Transmission Date: 20041129
  Serious: Yes (Hospitalization)
  Sender: FDA-Public Use
  Company Number: FR-GLAXOSMITHKLINE-B0318811A

PATIENT
  Age: 65 Year
  Sex: Male
  Weight: 60 kg

DRUGS (5)
  1. ONDANSETRON HCL [Suspect]
     Indication: PROPHYLAXIS OF NAUSEA AND VOMITING
     Dosage: 8MG CYCLIC
     Route: 042
     Dates: start: 20021201, end: 20031201
  2. GEMZAR [Suspect]
     Dosage: 1680MG CYCLIC
     Route: 042
     Dates: start: 20021201, end: 20031128
  3. COVERSYL [Concomitant]
     Dosage: 1UNIT PER DAY
     Route: 048
  4. ASPEGIC 1000 [Concomitant]
     Dosage: 1UNIT PER DAY
     Route: 048
  5. FUROSEMIDE [Concomitant]
     Dosage: 1UNIT PER DAY
     Route: 048

REACTIONS (2)
  - HAEMOLYTIC URAEMIC SYNDROME [None]
  - THROMBOCYTOPENIA [None]
